FAERS Safety Report 21568981 (Version 2)
Quarter: 2023Q2

REPORT INFORMATION
  Report Type: Report from Study
  Country: US (occurrence: US)
  Receive Date: 20221108
  Receipt Date: 20230612
  Transmission Date: 20230721
  Serious: Yes (Hospitalization)
  Sender: FDA-Public Use
  Company Number: US-ABBVIE-4190972

PATIENT
  Sex: Male

DRUGS (2)
  1. IMBRUVICA [Suspect]
     Active Substance: IBRUTINIB
     Indication: Mantle cell lymphoma
     Dosage: IN JAN 2022, THERAPY WAS DISCONTINUED
     Route: 048
     Dates: start: 20220128
  2. IMBRUVICA [Suspect]
     Active Substance: IBRUTINIB
     Indication: Mantle cell lymphoma
     Dosage: FORM STRENGTH: 20 MILLIGRAM
     Route: 048

REACTIONS (2)
  - Diverticulitis [Unknown]
  - Diverticulitis [Unknown]

NARRATIVE: CASE EVENT DATE: 20220101
